FAERS Safety Report 21637696 (Version 1)
Quarter: 2022Q4

REPORT INFORMATION
  Report Type: Spontaneous
  Country: IT (occurrence: IT)
  Receive Date: 20221124
  Receipt Date: 20221124
  Transmission Date: 20230112
  Serious: Yes (Other)
  Sender: FDA-Public Use
  Company Number: IT-SUN PHARMACEUTICAL INDUSTRIES LTD-2022RR-365480

PATIENT
  Age: 61 Year
  Sex: Female

DRUGS (8)
  1. GEMCITABINE [Suspect]
     Active Substance: GEMCITABINE
     Indication: Breast cancer
     Dosage: UNK
     Route: 065
     Dates: start: 201712
  2. OXALIPLATIN [Suspect]
     Active Substance: OXALIPLATIN
     Indication: Breast cancer
     Dosage: FOLFOX REGIMEN
     Route: 065
  3. LEUCOVORIN CALCIUM [Suspect]
     Active Substance: LEUCOVORIN CALCIUM
     Indication: Breast cancer
     Dosage: FOLFOX REGIMEN
     Route: 065
  4. LEUCOVORIN CALCIUM [Suspect]
     Active Substance: LEUCOVORIN CALCIUM
     Dosage: FOLFIRI REGIMEN
     Route: 065
  5. IRINOTECAN [Suspect]
     Active Substance: IRINOTECAN
     Indication: Breast cancer
     Dosage: FOLFIRI REGIMEN
     Route: 065
  6. PACLITAXEL [Suspect]
     Active Substance: PACLITAXEL
     Indication: Breast cancer
     Dosage: UNK
     Route: 065
     Dates: start: 201712
  7. FLUOROURACIL [Suspect]
     Active Substance: FLUOROURACIL
     Indication: Breast cancer
     Dosage: FOLFOX REGIMEN
     Route: 065
  8. FLUOROURACIL [Suspect]
     Active Substance: FLUOROURACIL
     Dosage: FOLFIRI REGIMEN
     Route: 065

REACTIONS (2)
  - Disease progression [Unknown]
  - Therapy partial responder [Unknown]

NARRATIVE: CASE EVENT DATE: 20171201
